FAERS Safety Report 4445539-8 (Version None)
Quarter: 2004Q3

REPORT INFORMATION
  Report Type: 
  Country: None (occurrence: None)
  Receive Date: 20040902
  Receipt Date: 20040823
  Transmission Date: 20050211
  Serious: Yes (Death)
  Sender: FDA-Public Use
  Company Number: F01200402273

PATIENT
  Age: 69 Year
  Sex: Female

DRUGS (8)
  1. (FONDAPARINUX SODIUM) - SOLUTION - UNIT DOSE : UNKNOWN [Suspect]
     Indication: ORTHOPEDIC PROCEDURE
     Dosage: 2.5 MG
     Route: 058
     Dates: start: 20040727
  2. ACETAMINOPHEN [Concomitant]
  3. ESOMEPRAZOLE [Concomitant]
  4. METAMIZOLE SODIUM [Concomitant]
  5. CANDESARTAN CILEXETIL [Concomitant]
  6. NIFEDIPIN (NIFEDIPINE) [Concomitant]
  7. SOTALOL HYDROCHLORIDE [Concomitant]
  8. CEPHAZOLIN SODIUM (CEFAZOLIN SODIUM) [Concomitant]

REACTIONS (2)
  - ACUTE MYOCARDIAL INFARCTION [None]
  - CARDIAC ARREST [None]
